FAERS Safety Report 7104969-6 (Version None)
Quarter: 2010Q4

REPORT INFORMATION
  Report Type: 
  Country: None (occurrence: None)
  Receive Date: 20101116
  Receipt Date: 20101103
  Transmission Date: 20110411
  Serious: Yes (Hospitalization, Other)
  Sender: FDA-Public Use
  Company Number: PHFR2010GB05093

PATIENT
  Sex: Male

DRUGS (1)
  1. CLOZARIL [Suspect]
     Indication: SCHIZOPHRENIA
     Route: 048
     Dates: start: 20101021

REACTIONS (6)
  - DIARRHOEA [None]
  - GASTROENTERITIS VIRAL [None]
  - NAUSEA [None]
  - PYREXIA [None]
  - TACHYCARDIA [None]
  - VOMITING [None]
